FAERS Safety Report 24850630 (Version 1)
Quarter: 2025Q1

REPORT INFORMATION
  Report Type: Spontaneous
  Country: US (occurrence: US)
  Receive Date: 20250116
  Receipt Date: 20250116
  Transmission Date: 20250408
  Serious: Yes (Death, Other)
  Sender: INTERCHEM
  Company Number: US-HQ SPECIALTY-US-2025INT000003

PATIENT
  Age: 60 Year
  Sex: Male

DRUGS (4)
  1. CISPLATIN [Suspect]
     Active Substance: CISPLATIN
     Indication: Metastatic neoplasm
     Route: 065
     Dates: start: 202212, end: 2023
  2. GEMCITABINE [Suspect]
     Active Substance: GEMCITABINE
     Indication: Metastatic neoplasm
     Route: 065
     Dates: start: 202212, end: 2023
  3. GEMCITABINE [Suspect]
     Active Substance: GEMCITABINE
     Route: 065
     Dates: start: 2023
  4. DURVALUMAB [Suspect]
     Active Substance: DURVALUMAB
     Indication: Metastatic neoplasm
     Route: 065
     Dates: start: 202212, end: 2023

REACTIONS (2)
  - Disease progression [Fatal]
  - Immune thrombocytopenia [Not Recovered/Not Resolved]

NARRATIVE: CASE EVENT DATE: 20230101
